FAERS Safety Report 12168575 (Version 1)
Quarter: 2016Q1

REPORT INFORMATION
  Report Type: Spontaneous
  Country: US (occurrence: US)
  Receive Date: 20160310
  Receipt Date: 20160310
  Transmission Date: 20160526
  Serious: No
  Sender: FDA-Public Use
  Company Number: US-ROXANE LABORATORIES, INC.-2016-RO-00496RO

PATIENT
  Sex: Male
  Weight: 86 kg

DRUGS (6)
  1. LATUDA [Suspect]
     Active Substance: LURASIDONE HYDROCHLORIDE
     Indication: BIPOLAR II DISORDER
     Dosage: 120 MG
     Route: 048
  2. LEXAPRO [Suspect]
     Active Substance: ESCITALOPRAM OXALATE
     Indication: DEPRESSION
     Dosage: 40 MG
     Route: 065
  3. LITHIUM CARBONATE CAPSULES USP, 150 MG [Suspect]
     Active Substance: LITHIUM CARBONATE
     Indication: BIPOLAR II DISORDER
     Dosage: 30 MG
     Route: 048
  4. LITHIUM CARBONATE CAPSULES USP, 150 MG [Suspect]
     Active Substance: LITHIUM CARBONATE
     Indication: DEPRESSION
  5. LAMICTAL [Suspect]
     Active Substance: LAMOTRIGINE
     Indication: BIPOLAR II DISORDER
     Dosage: 400 MG
     Route: 048
  6. RISPERDAL [Suspect]
     Active Substance: RISPERIDONE
     Indication: BIPOLAR II DISORDER
     Dosage: 0.5 MG
     Route: 048

REACTIONS (2)
  - Loss of libido [Unknown]
  - Erectile dysfunction [Unknown]
